FAERS Safety Report 16481942 (Version 1)
Quarter: 2019Q2

REPORT INFORMATION
  Report Type: Spontaneous
  Country: US (occurrence: US)
  Receive Date: 20190627
  Receipt Date: 20190627
  Transmission Date: 20190711
  Serious: No
  Sender: FDA-Public Use
  Company Number: US-JNJFOC-20190627214

PATIENT
  Age: 64 Year
  Sex: Female
  Weight: 70.37 kg

DRUGS (3)
  1. IBRANCE [Suspect]
     Active Substance: PALBOCICLIB
     Dosage: 21 DAYS ON AND 7 DAYS OFF
     Dates: start: 201811
  2. ANASTROZOLE. [Concomitant]
     Active Substance: ANASTROZOLE
  3. ROGAINE [Suspect]
     Active Substance: MINOXIDIL
     Indication: ALOPECIA
     Route: 061

REACTIONS (2)
  - Therapeutic product effect decreased [Unknown]
  - Alopecia [Not Recovered/Not Resolved]

NARRATIVE: CASE EVENT DATE: 201905
